FAERS Safety Report 6570870-X (Version None)
Quarter: 2010Q1

REPORT INFORMATION
  Report Type: 
  Country: None (occurrence: None)
  Receive Date: 20100204
  Receipt Date: 20100129
  Transmission Date: 20100710
  Serious: Yes (Hospitalization)
  Sender: FDA-Public Use
  Company Number: MK-B.I. PHARMACEUTICALS,INC./RIDGEFIELD-2010-AP-00049AP

PATIENT
  Sex: Female
  Weight: 65 kg

DRUGS (2)
  1. MOVALIS [Suspect]
     Indication: ARTHRALGIA
     Dates: start: 20091128, end: 20091129
  2. MOVALIS [Suspect]
     Indication: INTERVERTEBRAL DISC DISORDER

REACTIONS (3)
  - HYPERGLYCAEMIA [None]
  - TACHYCARDIA [None]
  - URINARY TRACT INFECTION [None]
